FAERS Safety Report 18764169 (Version 1)
Quarter: 2021Q1

REPORT INFORMATION
  Report Type: Report from Study
  Country: US (occurrence: US)
  Receive Date: 20210120
  Receipt Date: 20210120
  Transmission Date: 20210419
  Serious: Yes (Death, Life-Threatening)
  Sender: FDA-Public Use
  Company Number: US-ASTRAZENECA-2021A008787

PATIENT
  Age: 59 Year
  Sex: Male

DRUGS (1)
  1. LYNPARZA [Suspect]
     Active Substance: OLAPARIB
     Indication: HEPATIC CANCER
     Route: 048

REACTIONS (3)
  - Paralysis [Unknown]
  - Death [Fatal]
  - Liver disorder [Unknown]

NARRATIVE: CASE EVENT DATE: 202007
